FAERS Safety Report 10572979 (Version 1)
Quarter: 2014Q4

REPORT INFORMATION
  Report Type: Spontaneous
  Country: US (occurrence: US)
  Receive Date: 20141110
  Receipt Date: 20141110
  Transmission Date: 20150529
  Serious: No
  Sender: FDA-Public Use
  Company Number: US-TEVA-475068USA

PATIENT
  Age: 52 Year
  Sex: Female

DRUGS (1)
  1. PHENTERMINE [Suspect]
     Active Substance: PHENTERMINE
     Indication: WEIGHT DECREASED
     Dates: start: 20140312

REACTIONS (3)
  - Thinking abnormal [Unknown]
  - Drug ineffective [Unknown]
  - Hunger [Unknown]

NARRATIVE: CASE EVENT DATE: 201403
